FAERS Safety Report 8005849-4 (Version None)
Quarter: 2011Q4

REPORT INFORMATION
  Report Type: 
  Country: None (occurrence: None)
  Receive Date: 20111223
  Receipt Date: 20111214
  Transmission Date: 20120403
  Serious: Yes (Other)
  Sender: FDA-Public Use
  Company Number: US-ASTRAZENECA-2011SE36793

PATIENT
  Age: 70 Year
  Sex: Female
  Weight: 63.5 kg

DRUGS (20)
  1. SYMBICORT [Suspect]
     Indication: ASTHMA
     Dosage: 160 MCG, 2 PUFFS, BID
     Route: 055
  2. SYMBICORT [Suspect]
     Dosage: ONE PUFF, UNKNOWN FREQUENCY
     Route: 055
  3. SYMBICORT [Suspect]
     Dosage: TWO PUFFS, UNKNOWN FREQUENCY
     Route: 055
  4. SYMBICORT [Suspect]
     Dosage: TWO PUFF TWICE DAILY
     Route: 055
  5. NEXIUM [Suspect]
     Route: 048
  6. TEVETEN [Concomitant]
  7. ALIGNE [Concomitant]
  8. SYMBICORT [Suspect]
     Indication: DYSPNOEA
     Dosage: 160 MCG, 2 PUFFS, BID
     Route: 055
  9. ATENOLOL [Concomitant]
  10. ALPRACOLAM [Concomitant]
  11. TRIANT/HCTZ [Concomitant]
     Dosage: 37.5/25 MG, EVERYDAY
  12. SYMBICORT [Suspect]
     Dosage: TWO PUFF TWICE DAILY
     Route: 055
  13. ASPIRIN [Concomitant]
  14. TRAZODONE HCL [Concomitant]
  15. NEXIUM [Suspect]
     Indication: GASTROOESOPHAGEAL REFLUX DISEASE
     Route: 048
  16. DILTIAZEM HCL [Concomitant]
  17. SYMBICORT [Suspect]
     Dosage: ONE PUFF, UNKNOWN FREQUENCY
     Route: 055
  18. SYMBICORT [Suspect]
     Dosage: TWO PUFFS, UNKNOWN FREQUENCY
     Route: 055
  19. DECONGESTANT [Concomitant]
  20. CINGULAR [Concomitant]

REACTIONS (18)
  - EYE DISCHARGE [None]
  - TINNITUS [None]
  - MALAISE [None]
  - OROPHARYNGEAL CANDIDIASIS [None]
  - LEUKAEMIA [None]
  - HEADACHE [None]
  - DIZZINESS [None]
  - CHEST PAIN [None]
  - FLUSHING [None]
  - FEELING JITTERY [None]
  - NERVOUSNESS [None]
  - COUGH [None]
  - OROPHARYNGEAL PAIN [None]
  - LIP BLISTER [None]
  - NAUSEA [None]
  - DYSPNOEA [None]
  - NASOPHARYNGITIS [None]
  - TREMOR [None]
